FAERS Safety Report 9626218 (Version 1)
Quarter: 2013Q4

REPORT INFORMATION
  Report Type: Report from Study
  Country: US (occurrence: US)
  Receive Date: 20131016
  Receipt Date: 20131016
  Transmission Date: 20140711
  Serious: Yes (Other)
  Sender: FDA-Public Use
  Company Number: US-NOVOPROD-389646

PATIENT
  Age: 46 Year
  Sex: Male

DRUGS (11)
  1. VICTOZA [Suspect]
     Indication: DIABETES MELLITUS
     Dosage: UNK
     Route: 058
     Dates: start: 201202, end: 201207
  2. HUMIRA [Suspect]
     Indication: PSORIATIC ARTHROPATHY
     Dosage: 40 MG, EVERY 2 WEEKS
     Dates: start: 201203, end: 201207
  3. HUMIRA [Suspect]
     Dosage: 40 MG, EVERY 2 WEEKS
     Dates: start: 201208
  4. TRAMADOL [Concomitant]
     Indication: BACK PAIN
  5. TRAMADOL [Concomitant]
     Indication: ARTHRITIS
  6. METFORMIN [Concomitant]
     Indication: DIABETES MELLITUS
  7. GLYBURIDE [Concomitant]
     Indication: DIABETES MELLITUS
  8. LANTUS [Concomitant]
     Indication: DIABETES MELLITUS
  9. METOPROLOL [Concomitant]
     Indication: HYPERTENSION
  10. AMLODIPINE [Concomitant]
     Indication: HYPERTENSION
  11. LISINOPRIL [Concomitant]
     Indication: PRODUCT USED FOR UNKNOWN INDICATION

REACTIONS (2)
  - Dehydration [Recovered/Resolved]
  - Renal failure [Unknown]
